FAERS Safety Report 5852663-1 (Version None)
Quarter: 2008Q3

REPORT INFORMATION
  Report Type: 
  Country: None (occurrence: None)
  Receive Date: 20080821
  Receipt Date: 20080819
  Transmission Date: 20090109
  Serious: Yes (Life-Threatening, Hospitalization)
  Sender: FDA-Public Use
  Company Number: B0533902A

PATIENT
  Age: 52 Year
  Sex: Male

DRUGS (2)
  1. AUGMENTIN '125' [Suspect]
     Indication: DRUG USE FOR UNKNOWN INDICATION
     Dosage: 1G PER DAY
     Route: 042
     Dates: start: 20080509, end: 20080509
  2. NOLOTIL [Suspect]
     Indication: DRUG USE FOR UNKNOWN INDICATION
     Dosage: 2G PER DAY
     Route: 042
     Dates: start: 20080509, end: 20080509

REACTIONS (6)
  - AGONAL DEATH STRUGGLE [None]
  - ANAPHYLACTIC SHOCK [None]
  - CAROTID PULSE [None]
  - COLD SWEAT [None]
  - HYPOTENSION [None]
  - RESPIRATORY DISORDER [None]
